FAERS Safety Report 17572397 (Version 1)
Quarter: 2020Q1

REPORT INFORMATION
  Report Type: Spontaneous
  Country: TW (occurrence: TW)
  Receive Date: 20200323
  Receipt Date: 20200323
  Transmission Date: 20200409
  Serious: Yes (Other)
  Sender: FDA-Public Use
  Company Number: TW-CASPER PHARMA LLC-2020CAS000150

PATIENT
  Age: 39 Year
  Sex: Male

DRUGS (3)
  1. BISMUTH, METRONIDAZOLE, TETRACYCLIN [Suspect]
     Active Substance: BISMUTH SUBSALICYLATE\METRONIDAZOLE\TETRACYCLINE HYDROCHLORIDE
     Indication: PSORIATIC ARTHROPATHY
     Dosage: UNK
     Route: 065
  2. VANCOMYCIN [Suspect]
     Active Substance: VANCOMYCIN
     Indication: PSORIATIC ARTHROPATHY
     Dosage: UNK
     Route: 065
  3. CEFEPIME [Suspect]
     Active Substance: CEFEPIME HYDROCHLORIDE
     Indication: PSORIATIC ARTHROPATHY
     Dosage: UNK
     Route: 065

REACTIONS (1)
  - Drug reaction with eosinophilia and systemic symptoms [Unknown]
